FAERS Safety Report 8586860-1 (Version None)
Quarter: 2012Q3

REPORT INFORMATION
  Report Type: 
  Country: None (occurrence: None)
  Receive Date: 20120810
  Receipt Date: 20120718
  Transmission Date: 20120928
  Serious: Yes (Other)
  Sender: FDA-Public Use
  Company Number: CHPA2012US017393

PATIENT
  Age: 92 Year
  Sex: Female

DRUGS (1)
  1. MAALOX ANTACID/ANTIGAS RS LIQ COOL MINT [Suspect]
     Indication: ANXIETY
     Dosage: UNK, 3-4 TIMES PER DAY
     Route: 048

REACTIONS (10)
  - CATARACT [None]
  - EYE INFECTION [None]
  - NAUSEA [None]
  - OFF LABEL USE [None]
  - HYPOCHONDRIASIS [None]
  - GLAUCOMA [None]
  - FEELING ABNORMAL [None]
  - HEADACHE [None]
  - ANXIETY [None]
  - FLANK PAIN [None]
